FAERS Safety Report 5620056-8 (Version None)
Quarter: 2008Q1

REPORT INFORMATION
  Report Type: 
  Country: None (occurrence: None)
  Receive Date: 20080208
  Receipt Date: 20080129
  Transmission Date: 20080703
  Serious: Yes (Hospitalization)
  Sender: FDA-Public Use
  Company Number: FR-JNJFOC-20080106722

PATIENT
  Sex: Female

DRUGS (3)
  1. OFLOCET [Suspect]
     Indication: RELAPSING FEVER
     Route: 048
  2. OFLOCET [Suspect]
     Indication: PYELONEPHRITIS
     Route: 048
  3. OROKEN [Concomitant]
     Indication: PYELONEPHRITIS
     Route: 048

REACTIONS (3)
  - ABDOMINAL PAIN [None]
  - DRUG INEFFECTIVE [None]
  - VOMITING [None]
